FAERS Safety Report 8695720 (Version 2)
Quarter: 2013Q4

REPORT INFORMATION
  Report Type: Spontaneous
  Country: US (occurrence: US)
  Receive Date: 20120731
  Receipt Date: 20131106
  Transmission Date: 20140711
  Serious: Yes (Hospitalization)
  Sender: FDA-Public Use
  Company Number: US-MSD-1207USA010517

PATIENT
  Age: 86 Year
  Sex: Female

DRUGS (4)
  1. ZOCOR [Suspect]
     Route: 048
  2. LISINOPRIL [Suspect]
     Route: 048
  3. FERROUS SULFATE [Suspect]
     Route: 048
  4. ASPIRIN [Suspect]
     Route: 048

REACTIONS (2)
  - Dysphagia [Unknown]
  - Oesophagitis [Unknown]
